FAERS Safety Report 20087581 (Version 2)
Quarter: 2022Q2

REPORT INFORMATION
  Report Type: Spontaneous
  Country: US (occurrence: US)
  Receive Date: 20211118
  Receipt Date: 20220502
  Transmission Date: 20220720
  Serious: Yes (Other)
  Sender: FDA-Public Use
  Company Number: US-PFIZER INC-202101549520

PATIENT
  Age: 73 Year
  Sex: Male

DRUGS (1)
  1. XELJANZ XR [Suspect]
     Active Substance: TOFACITINIB CITRATE
     Dosage: 11 MG, 1X/DAY
     Route: 048

REACTIONS (3)
  - Pulmonary oedema [Unknown]
  - Pericardial effusion [Unknown]
  - Coronary artery bypass [Unknown]

NARRATIVE: CASE EVENT DATE: 20210101
